FAERS Safety Report 18627523 (Version 1)
Quarter: 2020Q4

REPORT INFORMATION
  Report Type: Spontaneous
  Country: BE (occurrence: BE)
  Receive Date: 20201217
  Receipt Date: 20201217
  Transmission Date: 20210114
  Serious: Yes (Death, Hospitalization, Other)
  Sender: FDA-Public Use
  Company Number: BE-ALVOGEN-2020-ALVOGEN-115517

PATIENT
  Age: 41 Year
  Sex: Male

DRUGS (2)
  1. DISULFIRAM. [Suspect]
     Active Substance: DISULFIRAM
     Indication: PRODUCT USED FOR UNKNOWN INDICATION
  2. DIAZEPAM. [Suspect]
     Active Substance: DIAZEPAM
     Indication: PRODUCT USED FOR UNKNOWN INDICATION

REACTIONS (9)
  - Overdose [Fatal]
  - Brain injury [Fatal]
  - Acidosis [Unknown]
  - Circulatory collapse [Fatal]
  - Alcohol intolerance [Fatal]
  - Ventricular fibrillation [Not Recovered/Not Resolved]
  - Renal failure [Not Recovered/Not Resolved]
  - Pneumonia aspiration [Fatal]
  - Depressed level of consciousness [Fatal]
